FAERS Safety Report 4839490-9 (Version None)
Quarter: 2005Q4

REPORT INFORMATION
  Report Type: 
  Country: None (occurrence: None)
  Receive Date: 20051129
  Receipt Date: 20051004
  Transmission Date: 20060501
  Serious: Yes (Hospitalization, Disabling, Other)
  Sender: FDA-Public Use
  Company Number: US-MERCK-0510USA03173

PATIENT
  Sex: Female
  Weight: 90 kg

DRUGS (4)
  1. VIOXX [Suspect]
     Indication: LIMB DISCOMFORT
     Route: 048
     Dates: start: 20030101
  2. VIOXX [Suspect]
     Indication: MUSCULOSKELETAL DISCOMFORT
     Route: 048
     Dates: start: 20030101
  3. GEODON [Concomitant]
     Route: 065
  4. FLUOXETINE [Concomitant]
     Route: 065

REACTIONS (8)
  - CARDIAC FLUTTER [None]
  - CEREBROVASCULAR ACCIDENT [None]
  - EMOTIONAL DISTRESS [None]
  - NEOPLASM [None]
  - PAIN [None]
  - PRURITUS GENERALISED [None]
  - RASH [None]
  - SKIN DISORDER [None]
